FAERS Safety Report 9908483 (Version 1)
Quarter: 2014Q1

REPORT INFORMATION
  Report Type: Spontaneous
  Country: US (occurrence: None)
  Receive Date: 20140214
  Receipt Date: 20140214
  Transmission Date: 20141002
  Serious: Yes (Hospitalization)
  Sender: FDA-Public Use
  Company Number: None

PATIENT
  Age: 83 Year
  Sex: Male
  Weight: 114.76 kg

DRUGS (23)
  1. LITHIUM [Suspect]
     Indication: BIPOLAR DISORDER
     Dosage: CHRONIC
     Route: 048
  2. ISOSORBIDE [Concomitant]
  3. GABAPENTIN [Concomitant]
  4. MIRTAZAPINE [Concomitant]
  5. DULCOLAX [Concomitant]
  6. LACTULOSE [Concomitant]
  7. TYLENOL [Concomitant]
  8. MOM [Concomitant]
  9. MIRALAX [Concomitant]
  10. ROBITUSSIN [Concomitant]
  11. PLAVIX [Concomitant]
  12. METFORMIN [Concomitant]
  13. FLOMAX [Concomitant]
  14. VISTARIL [Concomitant]
  15. CLONAZEPAM [Concomitant]
  16. ARICEPT [Concomitant]
  17. LIPITOR [Concomitant]
  18. MVI [Concomitant]
  19. VITAMIN B [Concomitant]
  20. VITAMIN D [Concomitant]
  21. STOOL SOFTNER [Concomitant]
  22. OMEPRAZOLE [Concomitant]
  23. ASMANEX [Concomitant]

REACTIONS (7)
  - Atrioventricular block second degree [None]
  - Bradycardia [None]
  - Thyroid disorder [None]
  - Pyrexia [None]
  - Leukocytosis [None]
  - Agitation [None]
  - Aggression [None]
